FAERS Safety Report 7420186-4 (Version None)
Quarter: 2011Q2

REPORT INFORMATION
  Report Type: 
  Country: None (occurrence: None)
  Receive Date: 20110418
  Receipt Date: 20110412
  Transmission Date: 20111010
  Serious: Yes (Other)
  Sender: FDA-Public Use
  Company Number: BE-PFIZER INC-2011080750

PATIENT
  Age: 52 Year
  Sex: Female

DRUGS (3)
  1. LYRICA [Suspect]
     Dosage: 150 MG, 1X/DAY
     Dates: start: 20110101
  2. LYRICA [Suspect]
     Dosage: 75 MG, 1X/DAY
     Dates: end: 20110301
  3. LYRICA [Suspect]
     Dosage: 225 MG, 1X/DAY
     Route: 048

REACTIONS (1)
  - EPILEPSY [None]
